FAERS Safety Report 9994388 (Version 1)
Quarter: 2014Q1

REPORT INFORMATION
  Report Type: Spontaneous
  Country: US (occurrence: US)
  Receive Date: 20140311
  Receipt Date: 20140311
  Transmission Date: 20141002
  Serious: No
  Sender: FDA-Public Use
  Company Number: US-009507513-1403USA000978

PATIENT
  Age: 16 Year
  Sex: Female
  Weight: 90.7 kg

DRUGS (3)
  1. IMPLANON [Suspect]
     Indication: CONTRACEPTION
     Dosage: 1 ROD UP TO 3 YRS, UNDER THE SKIN IN THE LEFT ARM
     Route: 059
     Dates: start: 201010
  2. IBUPROFEN [Concomitant]
     Indication: MUSCLE SPASMS
     Dosage: UNK
  3. IBUPROFEN [Concomitant]
     Indication: HEADACHE

REACTIONS (5)
  - Amenorrhoea [Unknown]
  - Dysmenorrhoea [Unknown]
  - Incorrect drug administration duration [Unknown]
  - Asthenia [Unknown]
  - Vomiting [Unknown]
